FAERS Safety Report 21190598 (Version 1)
Quarter: 2022Q3

REPORT INFORMATION
  Report Type: Report from Study
  Country: CO (occurrence: None)
  Receive Date: 20220809
  Receipt Date: 20220809
  Transmission Date: 20221027
  Serious: Yes (Death, Other)
  Sender: FDA-Public Use
  Company Number: 2022A278725

PATIENT
  Age: 21196 Day
  Sex: Female
  Weight: 59 kg

DRUGS (1)
  1. TAGRISSO [Suspect]
     Active Substance: OSIMERTINIB
     Indication: Lung neoplasm malignant
     Route: 048
     Dates: start: 20211004, end: 20220615

REACTIONS (1)
  - Death [Fatal]

NARRATIVE: CASE EVENT DATE: 20220716
